FAERS Safety Report 16186328 (Version 2)
Quarter: 2019Q4

REPORT INFORMATION
  Report Type: Spontaneous
  Country: US (occurrence: US)
  Receive Date: 20190411
  Receipt Date: 20191020
  Transmission Date: 20200122
  Serious: Yes (Other)
  Sender: FDA-Public Use
  Company Number: US-BRISTOL-MYERS SQUIBB COMPANY-BMS-2019-033924

PATIENT
  Age: 74 Year
  Sex: Male

DRUGS (1)
  1. HYDROXYUREA. [Suspect]
     Active Substance: HYDROXYUREA
     Indication: ESSENTIAL THROMBOCYTHAEMIA
     Dosage: UNK
     Route: 065

REACTIONS (4)
  - Myeloproliferative neoplasm [Unknown]
  - Myelodysplastic syndrome [Unknown]
  - Thrombocytopenia [Unknown]
  - Acute megakaryocytic leukaemia [Unknown]
